FAERS Safety Report 7804910-4 (Version None)
Quarter: 2011Q4

REPORT INFORMATION
  Report Type: 
  Country: None (occurrence: None)
  Receive Date: 20111010
  Receipt Date: 20111005
  Transmission Date: 20120403
  Serious: Yes (Hospitalization)
  Sender: FDA-Public Use
  Company Number: US-BRISTOL-MYERS SQUIBB COMPANY-15338353

PATIENT
  Age: 56 Year
  Sex: Male

DRUGS (16)
  1. GLUCOPHAGE [Concomitant]
  2. AVANDIA [Concomitant]
  3. DECADRON [Concomitant]
  4. ZOLPIDEM TARTRATE [Concomitant]
     Dates: start: 20090101
  5. OXYCODONE HCL [Concomitant]
     Indication: COUGH
     Dosage: OXYCODONE HCL SUSTAINED RELEASE
     Dates: start: 20101011
  6. LOMOTIL [Concomitant]
     Dates: start: 20101013, end: 20101014
  7. DEXAMETHASONE [Concomitant]
     Route: 048
     Dates: start: 20100101
  8. POTASSIUM [Concomitant]
     Dates: start: 20101101
  9. IPILIMUMAB [Suspect]
     Indication: MALIGNANT MELANOMA
     Dosage: 294MG
     Route: 042
     Dates: start: 20100920
  10. METFORMIN HYDROCHLORIDE [Concomitant]
     Dates: start: 20080101
  11. LOPERAMIDE HCL [Concomitant]
     Dates: start: 20080101
  12. GLIPIZIDE [Concomitant]
     Dates: start: 20101022
  13. BENADRYL [Concomitant]
  14. AMBIEN [Concomitant]
  15. ROSIGLITAZONE MALEATE [Concomitant]
     Dates: start: 20090101
  16. DIPHENHYDRAMINE HCL [Concomitant]
     Route: 048
     Dates: start: 20090101

REACTIONS (3)
  - DEHYDRATION [None]
  - DIARRHOEA [None]
  - VOMITING [None]
